FAERS Safety Report 6312317-4 (Version None)
Quarter: 2009Q3

REPORT INFORMATION
  Report Type: 
  Country: None (occurrence: None)
  Receive Date: 20090817
  Receipt Date: 20090803
  Transmission Date: 20100115
  Serious: Yes (Hospitalization)
  Sender: FDA-Public Use
  Company Number: SG-ROCHE-584372

PATIENT
  Age: 31 Year
  Sex: Male

DRUGS (9)
  1. VESANOID [Suspect]
     Indication: DRUG USE FOR UNKNOWN INDICATION
     Dosage: FORMULATION: PILLS. PATIENT INGESTED 100 PILLS.
     Route: 048
  2. VESANOID [Suspect]
     Route: 048
  3. ALLOPURINOL [Suspect]
     Indication: DRUG USE FOR UNKNOWN INDICATION
     Route: 065
  4. EPIVIR [Concomitant]
  5. VIOGEN-C [Concomitant]
     Dosage: DRUIG: VIOGEN: VITAMIN B COMPLEX WITH C AND MINERALS
  6. TRICOR [Concomitant]
  7. LISINOPRIL [Concomitant]
  8. ACYCLOVIR [Concomitant]
  9. ANDROGEL [Concomitant]

REACTIONS (3)
  - DIARRHOEA [None]
  - HAEMOGLOBIN DECREASED [None]
  - SUICIDE ATTEMPT [None]
